FAERS Safety Report 8972176 (Version 3)
Quarter: 2013Q1

REPORT INFORMATION
  Report Type: Spontaneous
  Country: US (occurrence: US)
  Receive Date: 20121218
  Receipt Date: 20130216
  Transmission Date: 20140127
  Serious: Yes (Hospitalization)
  Sender: FDA-Public Use
  Company Number: US-UCBSA-072678

PATIENT
  Sex: Female

DRUGS (3)
  1. CIMZIA [Suspect]
     Indication: CROHN^S DISEASE
     Dates: start: 20120425
  2. CITALOPRAM [Concomitant]
     Dosage: 20MG DAILY
  3. CITALOPRAM [Concomitant]
     Dosage: 40MG DAILY

REACTIONS (2)
  - Suicidal ideation [Recovered/Resolved]
  - Constipation [Not Recovered/Not Resolved]
